FAERS Safety Report 14514519 (Version 1)
Quarter: 2018Q1

REPORT INFORMATION
  Report Type: Spontaneous
  Country: JP (occurrence: JP)
  Receive Date: 20180209
  Receipt Date: 20180209
  Transmission Date: 20180509
  Serious: Yes (Other)
  Sender: FDA-Public Use
  Company Number: JP-BRISTOL-MYERS SQUIBB COMPANY-BMS-2018-010245

PATIENT
  Age: 26 Year
  Sex: Female

DRUGS (4)
  1. OPDIVO [Suspect]
     Active Substance: NIVOLUMAB
     Indication: PRODUCT USED FOR UNKNOWN INDICATION
     Dosage: UNK
     Route: 065
     Dates: start: 20150831, end: 20160324
  2. OPDIVO [Suspect]
     Active Substance: NIVOLUMAB
     Indication: PRODUCT USED FOR UNKNOWN INDICATION
     Dosage: 1 DF, UNK
     Route: 042
     Dates: start: 20170213
  3. OPDIVO [Suspect]
     Active Substance: NIVOLUMAB
     Indication: PRODUCT USED FOR UNKNOWN INDICATION
     Dosage: 1 DF, UNK
     Route: 042
     Dates: start: 20170306, end: 20180129
  4. LENVIMA [Suspect]
     Active Substance: LENVATINIB
     Indication: PRODUCT USED FOR UNKNOWN INDICATION
     Dosage: 8 MG, UNK
     Route: 048
     Dates: start: 20161121, end: 20170824

REACTIONS (24)
  - Gait disturbance [Unknown]
  - Pubic pain [Recovered/Resolved]
  - Hypothyroidism [Unknown]
  - Tonsillitis [Unknown]
  - Pyrexia [Recovered/Resolved]
  - Nausea [Unknown]
  - Musculoskeletal pain [Recovered/Resolved]
  - Dysphonia [Unknown]
  - Palmar-plantar erythrodysaesthesia syndrome [Recovered/Resolved]
  - Skin irritation [Unknown]
  - Headache [Unknown]
  - Abdominal pain [Unknown]
  - Erythema [Unknown]
  - Vomiting [Unknown]
  - Decreased appetite [Unknown]
  - Depression [Unknown]
  - Cough [Unknown]
  - Productive cough [Recovered/Resolved]
  - Malignant neoplasm progression [Unknown]
  - Haemoptysis [Recovering/Resolving]
  - Diarrhoea [Unknown]
  - Paraesthesia [Unknown]
  - Pericoronitis [Unknown]
  - Constipation [Unknown]

NARRATIVE: CASE EVENT DATE: 20160406
